FAERS Safety Report 26057567 (Version 1)
Quarter: 2025Q4

REPORT INFORMATION
  Report Type: Spontaneous
  Country: US (occurrence: US)
  Receive Date: 20251118
  Receipt Date: 20251118
  Transmission Date: 20260118
  Serious: Yes (Hospitalization)
  Sender: GILEAD
  Company Number: US-GILEAD-2025-0736092

PATIENT
  Age: 58 Year
  Sex: Male

DRUGS (1)
  1. LENACAPAVIR [Suspect]
     Active Substance: LENACAPAVIR
     Indication: HIV infection
     Dosage: INJECT 927MG (2 X 1.5ML) UNDER THE SKIN IN 2 SEPARATE SITES EVERY 6 MONTHS
     Route: 065
     Dates: start: 202503

REACTIONS (1)
  - Emergency care [Unknown]
